FAERS Safety Report 7389517-8 (Version None)
Quarter: 2011Q2

REPORT INFORMATION
  Report Type: 
  Country: None (occurrence: None)
  Receive Date: 20110401
  Receipt Date: 20110318
  Transmission Date: 20111010
  Serious: Yes (Other)
  Sender: FDA-Public Use
  Company Number: PHEH2006US11689

PATIENT
  Sex: Female

DRUGS (8)
  1. KEFLEX [Concomitant]
  2. ARIMIDEX [Concomitant]
     Dosage: UNK
     Dates: start: 20090127
  3. CLINDAMYCIN [Concomitant]
  4. PENICILLIN V [Concomitant]
  5. VICODIN [Concomitant]
  6. AMOXICILLIN [Suspect]
  7. IBUPROFEN [Concomitant]
  8. ZOMETA [Suspect]
     Dates: start: 20040101, end: 20050101

REACTIONS (41)
  - OSTEOMYELITIS [None]
  - OEDEMA [None]
  - FACE OEDEMA [None]
  - PAIN [None]
  - BONE DISORDER [None]
  - FISTULA [None]
  - METASTASES TO SPINE [None]
  - VULVAL DISORDER [None]
  - URTICARIA [None]
  - LYMPHOEDEMA [None]
  - BREAST CALCIFICATIONS [None]
  - DIABETIC MICROANGIOPATHY [None]
  - RASH [None]
  - MONARTHRITIS [None]
  - SPINAL OSTEOARTHRITIS [None]
  - SYSTEMIC SCLEROSIS [None]
  - OSTEONECROSIS OF JAW [None]
  - PRIMARY SEQUESTRUM [None]
  - ECZEMA [None]
  - TEMPORAL LOBE EPILEPSY [None]
  - OSTEOARTHRITIS [None]
  - TOOTH LOSS [None]
  - INFECTION [None]
  - DISCOMFORT [None]
  - METASTASES TO BONE [None]
  - TOBACCO ABUSE [None]
  - HOT FLUSH [None]
  - SWELLING [None]
  - GENERAL PHYSICAL HEALTH DETERIORATION [None]
  - BREAST CYST [None]
  - SKIN ATROPHY [None]
  - CONFUSIONAL STATE [None]
  - TINEA CRURIS [None]
  - INSOMNIA [None]
  - SEROMA [None]
  - DEPRESSION [None]
  - INJURY [None]
  - DECREASED INTEREST [None]
  - PRURITUS GENITAL [None]
  - TRANSIENT ISCHAEMIC ATTACK [None]
  - NEOPLASM MALIGNANT [None]
